FAERS Safety Report 17745418 (Version 2)
Quarter: 2020Q2

REPORT INFORMATION
  Report Type: Other
  Country: US (occurrence: US)
  Receive Date: 20200505
  Receipt Date: 20200618
  Transmission Date: 20200714
  Serious: No
  Sender: FDA-Public Use
  Company Number: US-AMAG PHARMACEUTICALS, INC.-AMAG202001359

PATIENT
  Age: 27 Year
  Sex: Female

DRUGS (1)
  1. MAKENA [Suspect]
     Active Substance: HYDROXYPROGESTERONE CAPROATE
     Indication: PREMATURE DELIVERY
     Dosage: 250MG/ML, WEEKLY
     Route: 058
     Dates: end: 20200330

REACTIONS (4)
  - Pruritus [Not Recovered/Not Resolved]
  - Product administered at inappropriate site [Unknown]
  - Injection site pain [Unknown]
  - Urticaria [Unknown]

NARRATIVE: CASE EVENT DATE: 20200330
